FAERS Safety Report 10096729 (Version 1)
Quarter: 2014Q2

REPORT INFORMATION
  Report Type: Spontaneous
  Country: FR (occurrence: FR)
  Receive Date: 20140422
  Receipt Date: 20140422
  Transmission Date: 20141212
  Serious: Yes (Hospitalization, Other)
  Sender: FDA-Public Use
  Company Number: FR-WATSON-2014-08070

PATIENT
  Age: 35 Year
  Sex: Female
  Weight: 57 kg

DRUGS (1)
  1. NAPROXEN (UNKNOWN) [Suspect]
     Indication: PAIN PROPHYLAXIS
     Dosage: 550 MG, TWICE
     Route: 065

REACTIONS (1)
  - Renal failure acute [Recovered/Resolved]
